FAERS Safety Report 10011692 (Version 1)
Quarter: 2014Q1

REPORT INFORMATION
  Report Type: Spontaneous
  Country: US (occurrence: None)
  Receive Date: 20140312
  Receipt Date: 20140312
  Transmission Date: 20141002
  Serious: Yes (Death, Hospitalization)
  Sender: FDA-Public Use
  Company Number: UTC-044912

PATIENT
  Age: 78 Year
  Sex: Female

DRUGS (13)
  1. REMODULIN (2.5 MILLIGRAM/MILLILITERS, INJECTION FOR INFUSION) (TREPROSTINIL SODIUM) [Suspect]
     Indication: PULMONARY ARTERIAL HYPERTENSION
     Dosage: (0.014 UG/KG, 1 IN 1 MIN)
     Route: 041
     Dates: start: 20120112
  2. POTASSIUM CHLORIDE [Concomitant]
  3. ULORIC (FEBUXOSTAT) [Concomitant]
  4. REVATIO (SILDENAFIL CITRATE) [Concomitant]
  5. LETAIRIS (AMBRISENTAN) (TABLETS) [Concomitant]
  6. IRON [Concomitant]
  7. CALCIUM [Concomitant]
  8. VITAMIN D3 (COLECALCIFEROL) [Concomitant]
  9. ADVAIR (SERETIDE /01420901/) [Concomitant]
  10. LASIX (FUROSEMIDE) [Concomitant]
  11. PROTONIX (PANTOPRAZOLE) [Concomitant]
  12. ZOCOR (SIMVASTATIN) [Concomitant]
  13. DIGOXIN [Concomitant]

REACTIONS (3)
  - Pulmonary arterial hypertension [None]
  - Disease progression [None]
  - Fluid overload [None]
